FAERS Safety Report 4633286-9 (Version None)
Quarter: 2005Q2

REPORT INFORMATION
  Report Type: 
  Country: None (occurrence: None)
  Receive Date: 20050412
  Receipt Date: 20050330
  Transmission Date: 20051028
  Serious: No
  Sender: FDA-Public Use
  Company Number: US-ABBOTT-05P-163-0295863-00

PATIENT
  Age: 7 Year
  Sex: Male

DRUGS (1)
  1. CYLERT [Suspect]
     Indication: DRUG USE FOR UNKNOWN INDICATION

REACTIONS (1)
  - HEPATIC FIBROSIS [None]
